FAERS Safety Report 6150208-2 (Version None)
Quarter: 2009Q2

REPORT INFORMATION
  Report Type: 
  Country: None (occurrence: None)
  Receive Date: 20090408
  Receipt Date: 20090408
  Transmission Date: 20091009
  Serious: Yes (Other)
  Sender: FDA-Public Use
  Company Number: None

PATIENT
  Sex: Male

DRUGS (1)
  1. DIVALPROEX SODIUM [Suspect]
     Indication: CONVULSION
     Dosage: 2 AM PO 3 HS PO
     Route: 048
     Dates: start: 20090321, end: 20090325

REACTIONS (2)
  - ORAL DISCOMFORT [None]
  - PRODUCT QUALITY ISSUE [None]
